FAERS Safety Report 8932746 (Version 5)
Quarter: 2013Q2

REPORT INFORMATION
  Report Type: Spontaneous
  Country: BR (occurrence: BR)
  Receive Date: 20121129
  Receipt Date: 20130401
  Transmission Date: 20140414
  Serious: Yes (Other)
  Sender: FDA-Public Use
  Company Number: PHHY2012BR109337

PATIENT
  Sex: Female
  Weight: 78 kg

DRUGS (3)
  1. FORASEQ [Suspect]
     Indication: BRONCHITIS
     Dosage: 1 DF, BID
  2. FORASEQ [Suspect]
     Dosage: 1 DF, BID
     Dates: start: 201202
  3. SPIRIVA [Suspect]
     Indication: BRONCHITIS

REACTIONS (5)
  - Lung infection [Recovered/Resolved]
  - Influenza [Recovered/Resolved]
  - Inflammation [Unknown]
  - Dyspnoea [Recovered/Resolved]
  - Capsule physical issue [Unknown]
